FAERS Safety Report 10658575 (Version 1)
Quarter: 2014Q4

REPORT INFORMATION
  Report Type: Spontaneous
  Country: US (occurrence: None)
  Receive Date: 20141205
  Receipt Date: 20141205
  Transmission Date: 20150529
  Serious: Yes (Hospitalization, Other)
  Sender: FDA-Public Use
  Company Number: 163-POMAL-14085232

PATIENT
  Age: 82 Year
  Sex: Female

DRUGS (4)
  1. POMALYST [Suspect]
     Active Substance: POMALIDOMIDE
     Indication: PLASMA CELL MYELOMA
     Dosage: 21 IN 21 D
     Route: 048
     Dates: start: 20140304, end: 20140811
  2. ASA (ACETYLSALICYCLIC ACID) [Concomitant]
  3. DEXAMETHASONE (DEXAMETHASONE) [Concomitant]
     Active Substance: DEXAMETHASONE
  4. WARFARIN (WARFARIN) [Concomitant]
     Active Substance: WARFARIN

REACTIONS (2)
  - Urinary tract infection [None]
  - Haemoglobin decreased [None]

NARRATIVE: CASE EVENT DATE: 20140811
